FAERS Safety Report 10294492 (Version 3)
Quarter: 2014Q3

REPORT INFORMATION
  Report Type: Spontaneous
  Country: AR (occurrence: AR)
  Receive Date: 20140710
  Receipt Date: 20140820
  Transmission Date: 20150326
  Serious: Yes (Other)
  Sender: FDA-Public Use
  Company Number: CHPA2014AR005906

PATIENT
  Sex: Female

DRUGS (2)
  1. NICOTINELL [Suspect]
     Active Substance: NICOTINE
     Dosage: UNK
  2. NICOTINELL [Suspect]
     Active Substance: NICOTINE
     Dosage: 6 DF, QD
     Route: 048
     Dates: start: 201311, end: 20140419

REACTIONS (5)
  - Throat irritation [Recovered/Resolved]
  - Nicotine dependence [Recovered/Resolved]
  - Nasopharyngitis [Recovered/Resolved]
  - Fall [Recovered/Resolved]
  - Pharyngitis [Recovered/Resolved]
